FAERS Safety Report 15569257 (Version 1)
Quarter: 2018Q4

REPORT INFORMATION
  Report Type: Report from Study
  Country: ES (occurrence: ES)
  Receive Date: 20181031
  Receipt Date: 20181031
  Transmission Date: 20190205
  Serious: Yes (Death, Other)
  Sender: FDA-Public Use
  Company Number: ES-ROCHE-2205793

PATIENT

DRUGS (3)
  1. PEMBROLIZUMAB. [Suspect]
     Active Substance: PEMBROLIZUMAB
     Indication: NON-SMALL CELL LUNG CANCER
     Route: 065
  2. ATEZOLIZUMAB. [Suspect]
     Active Substance: ATEZOLIZUMAB
     Indication: NON-SMALL CELL LUNG CANCER
     Route: 065
  3. NIVOLUMAB [Suspect]
     Active Substance: NIVOLUMAB
     Indication: NON-SMALL CELL LUNG CANCER
     Route: 065

REACTIONS (10)
  - Diarrhoea [Unknown]
  - Mucosal inflammation [Unknown]
  - Haemolytic anaemia [Unknown]
  - Pruritus [Unknown]
  - Thyroid disorder [Unknown]
  - Rash [Unknown]
  - Arthritis [Unknown]
  - Pneumonitis [Fatal]
  - Hepatitis [Unknown]
  - Nephritis [Unknown]
